FAERS Safety Report 10073845 (Version 2)
Quarter: 2014Q2

REPORT INFORMATION
  Report Type: Spontaneous
  Country: US (occurrence: US)
  Receive Date: 20140411
  Receipt Date: 20140411
  Transmission Date: 20141212
  Serious: Yes (Other)
  Sender: FDA-Public Use
  Company Number: US-BAUSCH-BL-2014-000629

PATIENT
  Sex: Female

DRUGS (1)
  1. MURO 128 5% OPHTHALMIC OINTMENT [Suspect]
     Indication: PRODUCT USED FOR UNKNOWN INDICATION
     Route: 061
     Dates: start: 201312

REACTIONS (1)
  - Corneal erosion [Unknown]
